FAERS Safety Report 19447991 (Version 1)
Quarter: 2021Q2

REPORT INFORMATION
  Report Type: Spontaneous
  Country: US (occurrence: US)
  Receive Date: 20210621
  Receipt Date: 20210621
  Transmission Date: 20210717
  Serious: No
  Sender: FDA-Public Use
  Company Number: None

PATIENT
  Age: 69 Year
  Sex: Male
  Weight: 50.35 kg

DRUGS (1)
  1. ZOLEDRONIC (ZOLEDRONIC ACID 4MG/VIL INJ) [Suspect]
     Active Substance: ZOLEDRONIC ACID
     Indication: OSTEOPOROSIS

REACTIONS (4)
  - Asthenia [None]
  - Diarrhoea [None]
  - Angina pectoris [None]
  - Decreased appetite [None]

NARRATIVE: CASE EVENT DATE: 20210304
